FAERS Safety Report 8439383-4 (Version None)
Quarter: 2012Q2

REPORT INFORMATION
  Report Type: 
  Country: None (occurrence: None)
  Receive Date: 20120615
  Receipt Date: 20120518
  Transmission Date: 20120825
  Serious: Yes (Other)
  Sender: FDA-Public Use
  Company Number: US-AMGEN-USASP2012019419

PATIENT
  Age: 61 Year
  Sex: Male

DRUGS (19)
  1. RIBAVIRIN [Concomitant]
     Indication: HEPATITIS C
     Dosage: UNK
     Dates: start: 20110301, end: 20111229
  2. LYRICA [Concomitant]
     Dosage: UNK
  3. LEXAPRO [Concomitant]
     Dosage: UNK
  4. PROAIR HFA [Concomitant]
     Dosage: UNK
  5. LANTUS [Concomitant]
     Dosage: UNK
  6. TRAZODONE HCL [Concomitant]
  7. TRILIPIX [Concomitant]
  8. DIOVAN [Concomitant]
     Dosage: UNK
  9. TRAMADOL HCL [Concomitant]
  10. INTERFERON [Concomitant]
     Indication: HEPATITIS C
     Dosage: UNK
     Dates: start: 20110301, end: 20111229
  11. DOXAZOSIN MESYLATE [Concomitant]
     Dosage: UNK
  12. PROCRIT [Suspect]
     Indication: HEPATITIS C
  13. RANITIDINE [Concomitant]
     Dosage: UNK
  14. METFORMIN HCL [Concomitant]
     Dosage: UNK
  15. LISINOPRIL [Concomitant]
  16. ASPIRIN [Concomitant]
     Dosage: UNK
  17. SPIRIVA [Concomitant]
     Dosage: UNK
  18. EXJADE [Concomitant]
     Dosage: UNK
     Dates: start: 20120301
  19. PROCRIT [Suspect]
     Indication: ANAEMIA
     Dosage: UNK UNK, QWK
     Route: 058
     Dates: start: 20100527, end: 20120229

REACTIONS (7)
  - NEUTRALISING ANTIBODIES POSITIVE [None]
  - THERAPEUTIC RESPONSE DECREASED [None]
  - PANCYTOPENIA [None]
  - HYPOCHROMIC ANAEMIA [None]
  - BONE MARROW RETICULIN FIBROSIS [None]
  - APLASIA PURE RED CELL [None]
  - ANTI-ERYTHROPOIETIN ANTIBODY POSITIVE [None]
